FAERS Safety Report 10252064 (Version 2)
Quarter: 2014Q2

REPORT INFORMATION
  Report Type: Report from Study
  Country: GB (occurrence: GB)
  Receive Date: 20140623
  Receipt Date: 20140623
  Transmission Date: 20141212
  Serious: Yes (Life-Threatening, Hospitalization)
  Sender: FDA-Public Use
  Company Number: PHHO2014GB008179

PATIENT
  Sex: 0

DRUGS (14)
  1. LCZ696 [Suspect]
     Indication: CARDIAC FAILURE CHRONIC
     Dosage: 50 MG, BID
     Route: 048
     Dates: start: 20140327, end: 20140401
  2. LCZ696 [Suspect]
     Dosage: 50 / 100 BID
     Route: 048
     Dates: start: 20140401, end: 20140417
  3. LCZ696 [Suspect]
     Dosage: 100 / 200 BID
     Route: 048
     Dates: start: 20140417, end: 20140508
  4. LCZ696 [Suspect]
     Dosage: 200 MG, BID
     Route: 048
     Dates: start: 20140508, end: 20140529
  5. EPLERENONE [Suspect]
     Indication: CARDIAC FAILURE
     Dosage: 12.5 MG, QD
     Route: 048
     Dates: start: 20131219, end: 20140605
  6. EPLERENONE [Suspect]
     Dosage: UNK, QOD
  7. NAPROXEN [Suspect]
     Indication: GOUT
     Dosage: 500 MG, BID
     Route: 048
     Dates: start: 20140604, end: 20140605
  8. CARVEDILOL [Concomitant]
     Indication: CARDIAC FAILURE
     Dosage: 12.5 MG, QD
     Route: 048
     Dates: start: 20010625
  9. DIGOXIN [Concomitant]
     Indication: ATRIAL FIBRILLATION
     Dosage: 125 MG, QD
     Route: 048
     Dates: start: 20130314
  10. FOLIC ACID [Concomitant]
     Indication: BLOOD FOLATE DECREASED
     Dosage: 400 MG, QD
     Route: 048
     Dates: start: 201302
  11. FUROSEMIDE [Concomitant]
     Indication: CARDIAC FAILURE
     Dosage: 40 MG, BID
     Route: 048
     Dates: start: 20011126
  12. LEVOTHYROXINE [Concomitant]
     Indication: HYPOTHYROIDISM
     Dosage: 50 MG, QD
     Route: 048
     Dates: start: 20130204
  13. CO-CODAMOL [Concomitant]
     Indication: MYALGIA
     Dosage: 8 / 500 MG, BID
     Dates: start: 20140604, end: 20140605
  14. WARFARIN [Concomitant]
     Dosage: 1 - 3 MG, UNK
     Dates: start: 20140508

REACTIONS (1)
  - Renal failure [Recovering/Resolving]
